FAERS Safety Report 5239016-4 (Version None)
Quarter: 2007Q1

REPORT INFORMATION
  Report Type: 
  Country: None (occurrence: None)
  Receive Date: 20061208
  Receipt Date: 20050614
  Transmission Date: 20070707
  Serious: Yes (Other)
  Sender: FDA-Public Use
  Company Number: 2005UW09124

PATIENT
  Age: 68 Year
  Sex: Female

DRUGS (1)
  1. CRESTOR [Suspect]
     Indication: BLOOD CHOLESTEROL INCREASED
     Dosage: 5 MG QD PO
     Route: 048

REACTIONS (3)
  - ABDOMINAL DISTENSION [None]
  - CHROMATURIA [None]
  - DISCOMFORT [None]
